FAERS Safety Report 16393273 (Version 1)
Quarter: 2019Q2

REPORT INFORMATION
  Report Type: Spontaneous
  Country: US (occurrence: US)
  Receive Date: 20190430
  Receipt Date: 20190430
  Transmission Date: 20190711
  Serious: Yes (Other)
  Sender: FDA-Public Use
  Company Number: None

PATIENT
  Age: 31 Year
  Sex: Female

DRUGS (1)
  1. SUBLOCADE [Suspect]
     Active Substance: BUPRENORPHINE
     Indication: DRUG DEPENDENCE
     Dosage: ?          OTHER FREQUENCY:30 DAYS ;?
     Route: 058
     Dates: start: 20190416

REACTIONS (2)
  - Rash papular [None]
  - Injection site pain [None]

NARRATIVE: CASE EVENT DATE: 20190416
